FAERS Safety Report 20722902 (Version 1)
Quarter: 2022Q2

REPORT INFORMATION
  Report Type: Spontaneous
  Country: FR (occurrence: CH)
  Receive Date: 20220419
  Receipt Date: 20220419
  Transmission Date: 20220721
  Serious: Yes (Other)
  Sender: FDA-Public Use
  Company Number: FR-SUN PHARMACEUTICAL INDUSTRIES LTD-2022RR-333369

PATIENT
  Age: 66 Year
  Sex: Male
  Weight: 100 kg

DRUGS (1)
  1. FLECAINIDE [Suspect]
     Active Substance: FLECAINIDE
     Indication: Atrial fibrillation
     Dosage: 100 MILLIGRAM, BID
     Route: 065

REACTIONS (2)
  - Electrocardiogram ST segment depression [Unknown]
  - Electrocardiogram QRS complex prolonged [Unknown]
